FAERS Safety Report 4694657-8 (Version None)
Quarter: 2005Q2

REPORT INFORMATION
  Report Type: 
  Country: None (occurrence: None)
  Receive Date: 20050620
  Receipt Date: 20050531
  Transmission Date: 20051028
  Serious: Yes (Death, Hospitalization)
  Sender: FDA-Public Use
  Company Number: ESPFI-S-20050001

PATIENT
  Age: 64 Year
  Sex: Female

DRUGS (7)
  1. NAVELBINE [Suspect]
     Indication: BREAST CANCER
     Dosage: 49.8MG CYCLIC
     Route: 042
     Dates: start: 20040915
  2. PANTECTA [Concomitant]
     Dosage: 40MG PER DAY
     Route: 065
  3. TRANKIMAZIN [Concomitant]
     Dosage: .5U UNKNOWN
     Route: 065
  4. SEGURIL [Concomitant]
     Route: 065
  5. BOI-K [Concomitant]
     Route: 065
  6. IBUPROFEN [Concomitant]
     Dosage: 600MG TWICE PER DAY
     Route: 065
  7. AREMIS [Concomitant]
     Dosage: 50MG PER DAY

REACTIONS (4)
  - ABDOMINAL PAIN [None]
  - ASTHENIA [None]
  - DISEASE PROGRESSION [None]
  - NEUTROPENIA [None]
